FAERS Safety Report 8057245-1 (Version None)
Quarter: 2012Q1

REPORT INFORMATION
  Report Type: 
  Country: None (occurrence: None)
  Receive Date: 20120119
  Receipt Date: 20120113
  Transmission Date: 20120608
  Serious: Yes (Hospitalization)
  Sender: FDA-Public Use
  Company Number: PHEH2012US001323

PATIENT
  Sex: Male

DRUGS (1)
  1. DIOVAN HCT [Suspect]
     Dosage: UNK

REACTIONS (4)
  - SYNCOPE [None]
  - LOSS OF CONSCIOUSNESS [None]
  - CRANIOCEREBRAL INJURY [None]
  - FACIAL BONES FRACTURE [None]
